FAERS Safety Report 14121864 (Version 2)
Quarter: 2017Q4

REPORT INFORMATION
  Report Type: Report from Study
  Country: MX (occurrence: MX)
  Receive Date: 20171024
  Receipt Date: 20171120
  Transmission Date: 20180321
  Serious: Yes (Other)
  Sender: FDA-Public Use
  Company Number: MX-UCBSA-2017042029

PATIENT
  Age: 26 Year
  Sex: Female
  Weight: 68 kg

DRUGS (10)
  1. LEVETIRACETAM. [Suspect]
     Active Substance: LEVETIRACETAM
     Dosage: 500 MG, 3X/DAY (TID)
     Route: 048
     Dates: start: 2009
  2. MATERNA [Concomitant]
     Active Substance: MINERALS\VITAMINS
     Indication: PRODUCT USED FOR UNKNOWN INDICATION
  3. LORATADINE. [Concomitant]
     Active Substance: LORATADINE
     Indication: INFLUENZA
  4. VIGABATRIN. [Concomitant]
     Active Substance: VIGABATRIN
     Indication: EPILEPSY
  5. DEXTROMETHORPHAN [Suspect]
     Active Substance: DEXTROMETHORPHAN
     Indication: PRODUCT USED FOR UNKNOWN INDICATION
     Dosage: UNK
  6. TOPIRAMATE. [Concomitant]
     Active Substance: TOPIRAMATE
     Indication: EPILEPSY
     Dosage: 1/2 OF A TABLET
  7. LEVETIRACETAM. [Suspect]
     Active Substance: LEVETIRACETAM
     Indication: EPILEPSY
     Dosage: 500 MG, 2X/DAY (BID)
     Route: 048
  8. LEVETIRACETAM. [Suspect]
     Active Substance: LEVETIRACETAM
     Dosage: 500 MG, 2X/DAY (BID)
     Route: 048
  9. LEVETIRACETAM. [Suspect]
     Active Substance: LEVETIRACETAM
     Indication: EPILEPSY
     Dosage: UNK
  10. MORPHINE [Suspect]
     Active Substance: MORPHINE
     Indication: ANAESTHESIA
     Dosage: UNK

REACTIONS (9)
  - Generalised tonic-clonic seizure [Unknown]
  - Off label use [Unknown]
  - Influenza [Unknown]
  - Twin pregnancy [Unknown]
  - Swelling [Recovered/Resolved]
  - Seizure [Recovered/Resolved]
  - Suppressed lactation [Recovered/Resolved]
  - Urinary incontinence [Unknown]
  - Pregnancy with contraceptive device [Unknown]

NARRATIVE: CASE EVENT DATE: 2016
